FAERS Safety Report 18331507 (Version 1)
Quarter: 2020Q3

REPORT INFORMATION
  Report Type: Spontaneous
  Country: CH (occurrence: CH)
  Receive Date: 20200930
  Receipt Date: 20200930
  Transmission Date: 20201103
  Serious: Yes (Hospitalization)
  Sender: FDA-Public Use
  Company Number: CH-ANIPHARMA-2020-CH-000032

PATIENT
  Age: 30 Year
  Sex: Female

DRUGS (6)
  1. MYFORTIC [Suspect]
     Active Substance: MYCOPHENOLATE SODIUM
     Dosage: 360 MG?0?540 MG
     Route: 065
  2. INDAPAMIDE. [Suspect]
     Active Substance: INDAPAMIDE
     Route: 065
  3. PREDNISONE. [Suspect]
     Active Substance: PREDNISONE
     Dosage: 7.5 MG QAM / DOSE TEXT: INCREASED
     Route: 065
  4. PLAQUENIL [Suspect]
     Active Substance: HYDROXYCHLOROQUINE SULFATE
     Route: 065
  5. ATACAND [Suspect]
     Active Substance: CANDESARTAN CILEXETIL
     Indication: HYPERTENSION
     Route: 048
  6. SORTIS [Suspect]
     Active Substance: ATORVASTATIN
     Dosage: 10 MG DAILY
     Route: 065

REACTIONS (3)
  - Aplasia [Recovering/Resolving]
  - Pyrexia [Recovering/Resolving]
  - Urogenital infection bacterial [Recovering/Resolving]

NARRATIVE: CASE EVENT DATE: 20200819
